FAERS Safety Report 4298973-3 (Version None)
Quarter: 2004Q1

REPORT INFORMATION
  Report Type: 
  Country: None (occurrence: None)
  Receive Date: 20040217
  Receipt Date: 20040206
  Transmission Date: 20041129
  Serious: Yes (Other)
  Sender: FDA-Public Use
  Company Number: HQ5957630DEC2002

PATIENT
  Age: 48 Year
  Sex: Female

DRUGS (3)
  1. INIPOMP (PANTOPRAZOLE, TABLET, DELAYED RELEASE) [Suspect]
     Indication: GASTROOESOPHAGEAL REFLUX DISEASE
     Dosage: ONE 20 MG TABLET
     Route: 048
     Dates: start: 20021126, end: 20021126
  2. INIPOMP (PANTOPRAZOLE, TABLET, DELAYED RELEASE) [Suspect]
     Indication: GASTROOESOPHAGEAL REFLUX DISEASE
     Dosage: ONE 20 MG TABLET
     Route: 048
     Dates: start: 20021001
  3. CLOXACILLIN (CLOXACILLIN, ) [Suspect]
     Dates: start: 20021001

REACTIONS (1)
  - ANAPHYLACTIC SHOCK [None]
